FAERS Safety Report 4357605-6 (Version None)
Quarter: 2004Q2

REPORT INFORMATION
  Report Type: 
  Country: None (occurrence: None)
  Receive Date: 20040512
  Receipt Date: 20040512
  Transmission Date: 20050107
  Serious: Yes (Hospitalization)
  Sender: FDA-Public Use
  Company Number: None

PATIENT
  Age: 33 Year
  Sex: Male

DRUGS (3)
  1. WELLBUTRIN [Suspect]
     Indication: DEPRESSION
     Dosage: 300 MG DAILY ORAL
     Route: 048
  2. ZOLOFT [Concomitant]
  3. XANAX [Concomitant]

REACTIONS (4)
  - AMNESIA [None]
  - CONVULSION [None]
  - FALL [None]
  - ROAD TRAFFIC ACCIDENT [None]
